FAERS Safety Report 8857157 (Version 1)
Quarter: 2012Q4

REPORT INFORMATION
  Report Type: 
  Country: US (occurrence: US)
  Receive Date: 20121023
  Receipt Date: 20121023
  Transmission Date: 20130627
  Serious: No
  Sender: FDA-Public Use
  Company Number: US-AMGEN-USASP2012054870

PATIENT
  Age: 52 Year
  Sex: Female
  Weight: 71.66 kg

DRUGS (8)
  1. ENBREL [Suspect]
     Indication: PRODUCT USED FOR UNKNOWN INDICATION
     Dosage: 50 mg, qwk
     Route: 058
  2. METHOTREXATE [Concomitant]
     Dosage: 2.5 mg, UNK
     Route: 048
  3. VICODIN [Concomitant]
     Dosage: 5-500 mg, UNK
     Route: 048
  4. MECLIZINE                          /00072801/ [Concomitant]
     Dosage: 12.5 mg, UNK
     Route: 048
  5. FLEXERIL                           /00428402/ [Concomitant]
     Dosage: 5 mg, UNK
     Route: 048
  6. CALCIUM [Concomitant]
     Route: 048
  7. FOLIC ACID [Concomitant]
     Route: 048
  8. VITAMIN D /00107901/ [Concomitant]
     Route: 048

REACTIONS (5)
  - Injection site swelling [Unknown]
  - Weight increased [Unknown]
  - Injection site erythema [Unknown]
  - Injection site dryness [Unknown]
  - Eczema [Unknown]
